FAERS Safety Report 13796120 (Version 2)
Quarter: 2017Q3

REPORT INFORMATION
  Report Type: Report from Study
  Country: US (occurrence: BR)
  Receive Date: 20170726
  Receipt Date: 20170905
  Transmission Date: 20171127
  Serious: Yes (Death)
  Sender: FDA-Public Use
  Company Number: US-SUNOVION-2017SUN003199

PATIENT
  Sex: Male

DRUGS (1)
  1. INDACATEROL AND GLYCOPYRROLATE [Suspect]
     Active Substance: GLYCOPYRROLATE\INDACATEROL MALEATE
     Indication: DYSPNOEA
     Dosage: UNK UNK, BID
     Route: 055
     Dates: start: 201606

REACTIONS (5)
  - Concomitant disease aggravated [Fatal]
  - Lung neoplasm malignant [Fatal]
  - Disease progression [Fatal]
  - Drug prescribing error [Unknown]
  - Product use in unapproved indication [Unknown]
